FAERS Safety Report 19132828 (Version 1)
Quarter: 2021Q2

REPORT INFORMATION
  Report Type: Spontaneous
  Country: US (occurrence: US)
  Receive Date: 20210413
  Receipt Date: 20210413
  Transmission Date: 20210717
  Serious: Yes (Death)
  Sender: FDA-Public Use
  Company Number: None

PATIENT
  Age: 29 Year
  Sex: Male

DRUGS (4)
  1. DEFERASIROX 360MG GRANULES [Suspect]
     Active Substance: DEFERASIROX
     Indication: IRON OVERLOAD
  2. FOLIC ACID. [Concomitant]
     Active Substance: FOLIC ACID
  3. DEFERASIROX 360MG GRANULES [Suspect]
     Active Substance: DEFERASIROX
     Indication: SICKLE CELL DISEASE
     Dosage: ?          OTHER FREQUENCY:2 PACKETS DAILY;?
     Route: 048
     Dates: start: 20201005, end: 20210401
  4. VITAMIN B12 [Concomitant]
     Active Substance: CYANOCOBALAMIN

REACTIONS (1)
  - Death [None]

NARRATIVE: CASE EVENT DATE: 20210401
